FAERS Safety Report 9012119 (Version 3)
Quarter: 2015Q2

REPORT INFORMATION
  Report Type: Spontaneous
  Country: US (occurrence: US)
  Receive Date: 20130114
  Receipt Date: 20150428
  Transmission Date: 20150821
  Serious: Yes (Hospitalization)
  Sender: FDA-Public Use
  Company Number: US-PFIZER INC-2013012412

PATIENT
  Age: 46 Year
  Sex: Female
  Weight: 75 kg

DRUGS (13)
  1. HYDROCODONE/ACETAMINOPHEN [Concomitant]
     Active Substance: ACETAMINOPHEN\HYDROCODONE
     Indication: PAIN
     Dosage: 1 DF, 4X/DAY (HYDROCODONE 10MG- ACETAMINOPHEN- 325MG)/EVERY 6 HOURS AS NEEDED
     Route: 048
     Dates: start: 2006
  2. LYRICA [Suspect]
     Active Substance: PREGABALIN
     Indication: MUSCLE DISORDER
     Dosage: UNK
     Route: 048
     Dates: start: 2004
  3. LYRICA [Suspect]
     Active Substance: PREGABALIN
     Indication: FIBROMYALGIA
     Dosage: UNK
     Route: 048
     Dates: end: 20130108
  4. LIDODERM [Concomitant]
     Active Substance: LIDOCAINE
     Dosage: 5 % (700MG /PATCH) 1 PATCH EVERY DAY (MAY WEAR UP TO 12 HOURS)
     Route: 062
  5. LISINOPRIL. [Concomitant]
     Active Substance: LISINOPRIL
     Dosage: 10 MG, 1X/DAY
     Route: 048
     Dates: start: 2004
  6. CELEBREX [Suspect]
     Active Substance: CELECOXIB
     Indication: NERVOUS SYSTEM DISORDER
     Dosage: 10 MG, 2X/DAY
     Dates: start: 2002
  7. CELEBREX [Suspect]
     Active Substance: CELECOXIB
     Indication: MUSCLE DISORDER
  8. AMOXICILLIN. [Concomitant]
     Active Substance: AMOXICILLIN
     Dosage: 500 MG, EVERY 12 HOURS
     Route: 048
  9. CLONAZEPAM. [Concomitant]
     Active Substance: CLONAZEPAM
     Dosage: 0.5 MG, 1X/DAY AS NEEDED
     Route: 048
     Dates: start: 2013
  10. FLUTICASONE PROPIONATE. [Concomitant]
     Active Substance: FLUTICASONE PROPIONATE
     Dosage: 50 MCG SPRAY 2 SPRAYS EVERY DAY IN EACH NOSTRIL
     Route: 045
  11. LYRICA [Suspect]
     Active Substance: PREGABALIN
     Indication: NERVOUS SYSTEM DISORDER
     Dosage: 100 MG, 2X/DAY
     Route: 048
  12. ALBUTEROL HFA [Concomitant]
     Active Substance: ALBUTEROL SULFATE
     Dosage: 90 ?G, UNK
  13. CYMBALTA [Concomitant]
     Active Substance: DULOXETINE HYDROCHLORIDE
     Dosage: 60 MG, 1X/DAY
     Route: 048

REACTIONS (9)
  - Body mass index increased [Unknown]
  - Hypokinesia [Not Recovered/Not Resolved]
  - Heart rate increased [Unknown]
  - Drug ineffective [Unknown]
  - Fatigue [Not Recovered/Not Resolved]
  - Myalgia [Not Recovered/Not Resolved]
  - Headache [Recovering/Resolving]
  - Oropharyngeal pain [Recovering/Resolving]
  - Pain in extremity [Not Recovered/Not Resolved]

NARRATIVE: CASE EVENT DATE: 2002
